FAERS Safety Report 16706924 (Version 2)
Quarter: 2019Q3

REPORT INFORMATION
  Report Type: Report from Study
  Country: BR (occurrence: BR)
  Receive Date: 20190815
  Receipt Date: 20190911
  Transmission Date: 20191004
  Serious: Yes (Life-Threatening, Other)
  Sender: FDA-Public Use
  Company Number: PHHY2016BR187359

PATIENT
  Age: 63 Year
  Sex: Female
  Weight: 53.5 kg

DRUGS (29)
  1. SANDOSTATIN LAR DEPOT [Suspect]
     Active Substance: OCTREOTIDE ACETATE
     Indication: ACROMEGALY
     Dosage: 30 MG, QMO (EVERY 28 DAYS)
     Route: 030
     Dates: start: 200209
  2. SANDOSTATIN LAR DEPOT [Suspect]
     Active Substance: OCTREOTIDE ACETATE
     Dosage: 30 MG, QMO
     Route: 030
     Dates: start: 20190408
  3. LEVOTHYROXINE. [Suspect]
     Active Substance: LEVOTHYROXINE
     Indication: THYROID DISORDER
     Dosage: 1 DF, QD
     Route: 048
     Dates: start: 2003
  4. SOMATULIN [Concomitant]
     Active Substance: LANREOTIDE ACETATE
     Indication: ACROMEGALY
     Dosage: 120 MG, UNK
     Route: 065
  5. BENZETACIL [Concomitant]
     Indication: PRODUCT USED FOR UNKNOWN INDICATION
     Route: 065
  6. SANDOSTATIN LAR DEPOT [Suspect]
     Active Substance: OCTREOTIDE ACETATE
     Dosage: 30 MG, QMO
     Route: 030
  7. SANDOSTATIN LAR DEPOT [Suspect]
     Active Substance: OCTREOTIDE ACETATE
     Dosage: 30 MG, QMO
     Route: 030
     Dates: end: 20181210
  8. ALDAZIDA [Suspect]
     Active Substance: HYDROCHLOROTHIAZIDE\SPIRONOLACTONE
     Indication: ADRENAL DISORDER
  9. ALDAZIDA [Suspect]
     Active Substance: HYDROCHLOROTHIAZIDE\SPIRONOLACTONE
     Indication: DIURETIC THERAPY
  10. METFORMIN [Concomitant]
     Active Substance: METFORMIN HYDROCHLORIDE
     Indication: DIABETES MELLITUS
     Dosage: 2 DF, QD
     Route: 048
  11. FLUOXETINE [Concomitant]
     Active Substance: FLUOXETINE HYDROCHLORIDE
     Indication: DEPRESSION
     Dosage: UNK
     Route: 065
  12. SANDOSTATIN LAR DEPOT [Suspect]
     Active Substance: OCTREOTIDE ACETATE
     Dosage: 30 MG, QMO (EVERY 28 DAYS)
     Route: 030
     Dates: start: 20161102
  13. SANDOSTATIN LAR DEPOT [Suspect]
     Active Substance: OCTREOTIDE ACETATE
     Dosage: 30 MG, QMO (EVERY 28 DAYS)
     Route: 030
     Dates: start: 201802, end: 201804
  14. CLONAZEPAM. [Concomitant]
     Active Substance: CLONAZEPAM
     Indication: SLEEP DISORDER
     Dosage: 2 MG, QD (16 YEARS AGO)
     Route: 048
     Dates: start: 2004
  15. MULTAMIN [Concomitant]
     Active Substance: VITAMINS
     Indication: PRODUCT USED FOR UNKNOWN INDICATION
     Route: 065
  16. ALDAZIDA [Suspect]
     Active Substance: HYDROCHLOROTHIAZIDE\SPIRONOLACTONE
     Indication: ACROMEGALY
     Dosage: 50 MG, BID (25 YEARS AGO)
     Route: 048
     Dates: start: 1993
  17. GLICLAZIDE [Concomitant]
     Active Substance: GLICLAZIDE
     Indication: DIABETES MELLITUS
     Dosage: 2 DF, QD
     Route: 048
  18. FUROSEMIDE. [Concomitant]
     Active Substance: FUROSEMIDE
     Indication: ACROMEGALY
     Dosage: 40 MG, BID (25 YEARS AGO)
     Route: 048
     Dates: start: 1993
  19. AZUKON [Concomitant]
     Active Substance: GLICLAZIDE
     Indication: DIABETES MELLITUS
     Dosage: UNK UNK, BID (15 YEARS AGO)
     Route: 048
  20. PARLODEL [Concomitant]
     Active Substance: BROMOCRIPTINE MESYLATE
     Indication: PRODUCT USED FOR UNKNOWN INDICATION
     Route: 065
  21. SANDOSTATIN LAR DEPOT [Suspect]
     Active Substance: OCTREOTIDE ACETATE
     Indication: PITUITARY TUMOUR
     Dosage: 30 MG, QMO (EVERY 28 DAYS
     Route: 030
  22. SANDOSTATIN LAR DEPOT [Suspect]
     Active Substance: OCTREOTIDE ACETATE
     Dosage: UNK
     Route: 065
  23. FUROSEMIDE. [Concomitant]
     Active Substance: FUROSEMIDE
     Indication: ADRENAL DISORDER
  24. CYCLOBENZAPRIN HYDROCHLORIDE [Concomitant]
     Active Substance: CYCLOBENZAPRINE HYDROCHLORIDE
     Indication: MYALGIA
     Dosage: 100 MG, BID (12 YEARS AGO)
     Route: 048
  25. SANDOSTATIN LAR DEPOT [Suspect]
     Active Substance: OCTREOTIDE ACETATE
     Dosage: 30 MG, UNK
     Route: 065
     Dates: start: 20190607
  26. SEPURIN [Concomitant]
     Indication: URINARY TRACT DISORDER
     Dosage: UNK
     Route: 065
  27. SANDOSTATIN LAR DEPOT [Suspect]
     Active Substance: OCTREOTIDE ACETATE
     Dosage: UNK
     Route: 030
     Dates: start: 2004
  28. DIAMICRON [Concomitant]
     Active Substance: GLICLAZIDE
     Indication: DIABETES MELLITUS
     Dosage: 30 MG, BID (15 YERAS AGO)
     Route: 048
  29. SUPRADYN [Concomitant]
     Active Substance: ASCORBIC ACID\MINERALS\VITAMINS
     Indication: PRODUCT USED FOR UNKNOWN INDICATION
     Dosage: 1 DF, QD
     Route: 048

REACTIONS (127)
  - Feeling abnormal [Unknown]
  - Vision blurred [Not Recovered/Not Resolved]
  - Pneumonia [Recovered/Resolved]
  - Pyrexia [Recovering/Resolving]
  - Tachycardia [Recovering/Resolving]
  - Cardiac arrest [Recovering/Resolving]
  - Eating disorder [Not Recovered/Not Resolved]
  - Injection site mass [Unknown]
  - Gastrointestinal hypomotility [Recovering/Resolving]
  - Coordination abnormal [Unknown]
  - Wheezing [Unknown]
  - Decreased appetite [Not Recovered/Not Resolved]
  - Feeling hot [Unknown]
  - Sluggishness [Unknown]
  - Body height increased [Not Recovered/Not Resolved]
  - Gastrointestinal neoplasm [Recovered/Resolved]
  - Blood potassium decreased [Unknown]
  - Salivary hypersecretion [Unknown]
  - Hot flush [Not Recovered/Not Resolved]
  - Dizziness [Unknown]
  - Recurrent cancer [Unknown]
  - Alveolar lung disease [Unknown]
  - Angina pectoris [Unknown]
  - Lymphatic system neoplasm [Recovering/Resolving]
  - Thyroid neoplasm [Recovered/Resolved]
  - Fall [Unknown]
  - Dyspepsia [Unknown]
  - Memory impairment [Unknown]
  - Discomfort [Recovered/Resolved]
  - Erythema [Unknown]
  - General physical health deterioration [Unknown]
  - Psychological trauma [Recovering/Resolving]
  - Renal pain [Unknown]
  - Suffocation feeling [Not Recovered/Not Resolved]
  - Drug ineffective [Not Recovered/Not Resolved]
  - Dysphagia [Unknown]
  - Balance disorder [Unknown]
  - Cataract [Not Recovered/Not Resolved]
  - Loss of consciousness [Unknown]
  - Swelling [Not Recovered/Not Resolved]
  - Metastases to bone [Recovering/Resolving]
  - Syncope [Unknown]
  - Muscle atrophy [Recovering/Resolving]
  - Dyspnoea [Unknown]
  - Sciatica [Recovering/Resolving]
  - Muscle neoplasm [Unknown]
  - Head injury [Unknown]
  - Mood swings [Unknown]
  - Swollen tongue [Unknown]
  - Eye swelling [Unknown]
  - Stress [Unknown]
  - Cardiovascular disorder [Unknown]
  - Adenoma benign [Unknown]
  - Mass [Unknown]
  - Depression [Recovering/Resolving]
  - Renal impairment [Unknown]
  - Fibromyalgia [Not Recovered/Not Resolved]
  - Weight increased [Not Recovered/Not Resolved]
  - Dehydration [Not Recovered/Not Resolved]
  - Sleep disorder [Unknown]
  - Emotional disorder [Unknown]
  - Cough [Unknown]
  - Dysstasia [Unknown]
  - Disturbance in attention [Unknown]
  - Volume blood decreased [Unknown]
  - Post procedural complication [Unknown]
  - Tongue discolouration [Unknown]
  - Abdominal distension [Unknown]
  - Regurgitation [Unknown]
  - Arrhythmia [Recovering/Resolving]
  - Chest pain [Unknown]
  - Spinal cord neoplasm [Unknown]
  - Nail discolouration [Unknown]
  - Injection site pain [Unknown]
  - Pain in extremity [Recovered/Resolved]
  - Personality disorder [Unknown]
  - Lung disorder [Unknown]
  - Depressed mood [Unknown]
  - Tension [Unknown]
  - Platelet count decreased [Recovering/Resolving]
  - Skin discolouration [Unknown]
  - Anger [Unknown]
  - Back pain [Unknown]
  - Bone formation decreased [Unknown]
  - Neoplasm malignant [Unknown]
  - Tumour pain [Not Recovered/Not Resolved]
  - Nervousness [Unknown]
  - Asthenia [Unknown]
  - Neoplasm [Not Recovered/Not Resolved]
  - Gait disturbance [Recovered/Resolved]
  - Muscular weakness [Recovered/Resolved]
  - Dysphonia [Unknown]
  - Gallbladder neoplasm [Recovered/Resolved]
  - Nausea [Unknown]
  - Mood altered [Unknown]
  - Mental disorder [Unknown]
  - Genital swelling [Recovering/Resolving]
  - Brain neoplasm malignant [Unknown]
  - Pituitary tumour [Unknown]
  - Metastasis [Unknown]
  - Malaise [Not Recovered/Not Resolved]
  - Pain [Not Recovered/Not Resolved]
  - Concomitant disease aggravated [Unknown]
  - Arthralgia [Not Recovered/Not Resolved]
  - Somnolence [Unknown]
  - Quality of life decreased [Recovering/Resolving]
  - Psychotic behaviour [Unknown]
  - Headache [Recovered/Resolved]
  - Alopecia [Recovering/Resolving]
  - Anxiety [Unknown]
  - Dysgraphia [Unknown]
  - Incorrect dose administered [Unknown]
  - Diabetes mellitus inadequate control [Not Recovered/Not Resolved]
  - Fatigue [Recovering/Resolving]
  - Peripheral swelling [Recovering/Resolving]
  - Swelling face [Recovering/Resolving]
  - Bone marrow infiltration [Unknown]
  - Weight decreased [Not Recovered/Not Resolved]
  - Skin discolouration [Recovered/Resolved]
  - Vein disorder [Unknown]
  - Apathy [Unknown]
  - Taste disorder [Unknown]
  - Rhinorrhoea [Unknown]
  - Hormone level abnormal [Not Recovered/Not Resolved]
  - Flatulence [Unknown]
  - Wrong technique in product usage process [Unknown]
  - Needle issue [Unknown]

NARRATIVE: CASE EVENT DATE: 2017
